FAERS Safety Report 7725483-0 (Version None)
Quarter: 2011Q3

REPORT INFORMATION
  Report Type: 
  Country: None (occurrence: None)
  Receive Date: 20110902
  Receipt Date: 20110720
  Transmission Date: 20111222
  Serious: No
  Sender: FDA-Public Use
  Company Number: US-BRISTOL-MYERS SQUIBB COMPANY-15904964

PATIENT
  Age: 60 Year
  Sex: Male
  Weight: 111 kg

DRUGS (2)
  1. LISINOPRIL [Concomitant]
     Indication: HYPERTENSION
  2. KOMBIGLYZE XR [Suspect]
     Indication: DIABETES MELLITUS
     Dosage: 1DF:2 TABS(5/500 MG TABLETS) 10MG OF SAXAGLIPTIN AND 1000MG OF METFORMIN(EXTENDED RELEASE)
     Dates: start: 20110101

REACTIONS (1)
  - OVERDOSE [None]
